FAERS Safety Report 19616070 (Version 1)
Quarter: 2021Q3

REPORT INFORMATION
  Report Type: Spontaneous
  Country: US (occurrence: US)
  Receive Date: 20210727
  Receipt Date: 20210727
  Transmission Date: 20211014
  Serious: Yes (Other)
  Sender: FDA-Public Use
  Company Number: US-RADIUS HEALTH INC.-2021US003136

PATIENT
  Age: 69 Year
  Sex: Female

DRUGS (2)
  1. TYMLOS [Suspect]
     Active Substance: ABALOPARATIDE
     Dosage: 40 MCG, QD
     Route: 058
  2. TYMLOS [Suspect]
     Active Substance: ABALOPARATIDE
     Indication: SENILE OSTEOPOROSIS
     Dosage: 80 MCG, QD
     Route: 058
     Dates: start: 202012

REACTIONS (5)
  - Off label use [Recovered/Resolved]
  - Orthostatic hypotension [Recovered/Resolved]
  - Palpitations [Recovering/Resolving]
  - Loss of consciousness [Recovered/Resolved]
  - Flushing [Recovering/Resolving]

NARRATIVE: CASE EVENT DATE: 202107
